FAERS Safety Report 10022963 (Version 2)
Quarter: 2014Q1

REPORT INFORMATION
  Report Type: Spontaneous
  Country: US (occurrence: US)
  Receive Date: 20140319
  Receipt Date: 20140319
  Transmission Date: 20141002
  Serious: No
  Sender: FDA-Public Use
  Company Number: US-SANOFI-AVENTIS-2013SA010099

PATIENT
  Age: 62 Year
  Sex: Female

DRUGS (6)
  1. NASACORT AQ [Suspect]
     Indication: MULTIPLE ALLERGIES
     Dosage: 2 SPRAYS EACH NOSTRIL
     Route: 045
     Dates: start: 2005, end: 2012
  2. NASACORT AQ [Suspect]
     Indication: MULTIPLE ALLERGIES
     Dosage: 2 SPRAYS EACH NOSTRIL
     Route: 045
     Dates: start: 2012
  3. NASACORT AQ [Suspect]
     Indication: MULTIPLE ALLERGIES
     Route: 045
     Dates: start: 2012
  4. TRIAMCINOLONE ACETONIDE [Suspect]
     Dates: start: 2012
  5. FLOVENT [Concomitant]
  6. VENTOLINE [Concomitant]

REACTIONS (4)
  - Feeling abnormal [Recovered/Resolved]
  - Palpitations [Recovered/Resolved]
  - Product substitution issue [Unknown]
  - Product substitution issue [Unknown]
